FAERS Safety Report 5260922-9 (Version None)
Quarter: 2007Q1

REPORT INFORMATION
  Report Type: 
  Country: None (occurrence: None)
  Receive Date: 20070309
  Receipt Date: 20070228
  Transmission Date: 20070707
  Serious: Yes (Death, Hospitalization, Other)
  Sender: FDA-Public Use
  Company Number: HQWYE184128FEB07

PATIENT
  Sex: Male

DRUGS (4)
  1. CORDARONE [Suspect]
     Indication: ATRIAL FIBRILLATION
     Route: 048
     Dates: start: 20060617, end: 20060914
  2. ASPIRIN [Concomitant]
     Route: 048
     Dates: start: 20060617
  3. BISOPROLOL [Concomitant]
     Route: 048
     Dates: start: 20060617
  4. AMLODIPINE [Concomitant]
     Route: 048
     Dates: start: 20060617

REACTIONS (5)
  - CONDITION AGGRAVATED [None]
  - DEATH [None]
  - INTERSTITIAL LUNG DISEASE [None]
  - RENAL FAILURE [None]
  - RESPIRATORY FAILURE [None]
